FAERS Safety Report 8220322 (Version 7)
Quarter: 2012Q4

REPORT INFORMATION
  Report Type: 
  Country: US (occurrence: US)
  Receive Date: 20111101
  Receipt Date: 20121025
  Transmission Date: 20130627
  Serious: Yes (Other)
  Sender: FDA-Public Use
  Company Number: US-AMGEN-USASP2011062178

PATIENT
  Sex: Female
  Weight: 5.35 kg

DRUGS (10)
  1. ENBREL [Suspect]
     Dosage: 50 mg, qwk
     Route: 064
     Dates: start: 2009
  2. ASPIRIN [Concomitant]
     Dosage: 81 mg, qd
     Route: 064
  3. FOLIC ACID [Concomitant]
     Dosage: 400 mg, qd
     Route: 064
     Dates: start: 201010
  4. ZANTAC [Concomitant]
     Dosage: 150 mg, bid
     Route: 064
     Dates: start: 201101, end: 201111
  5. PRENATAL                           /00231801/ [Concomitant]
     Dosage: UNK UNK, qd
     Route: 064
     Dates: start: 201010
  6. LOTEMAX [Concomitant]
     Dosage: UNK UNK, qd
     Route: 064
  7. COLACE [Concomitant]
     Dosage: 100 mg, bid
  8. CALCIUM CITRATE [Concomitant]
     Dosage: 1500 mg, qd
     Route: 064
     Dates: start: 2007
  9. PREDNISONE [Concomitant]
     Dosage: 5 mg, qd
     Route: 064
  10. PREDNISONE [Concomitant]
     Dosage: 2.5 mg, qd
     Route: 064
     Dates: start: 201102, end: 201103

REACTIONS (4)
  - Neonatal respiratory distress syndrome [Recovered/Resolved]
  - Cardiac murmur [Recovered/Resolved]
  - Meconium in amniotic fluid [Unknown]
  - Neonatal aspiration [Recovered/Resolved]
